FAERS Safety Report 18290814 (Version 2)
Quarter: 2020Q4

REPORT INFORMATION
  Report Type: Report from Study
  Country: TW (occurrence: TW)
  Receive Date: 20200921
  Receipt Date: 20201016
  Transmission Date: 20210113
  Serious: Yes (Death, Hospitalization)
  Sender: FDA-Public Use
  Company Number: TW-EISAI MEDICAL RESEARCH-EC-2020-080860

PATIENT
  Age: 80 Year
  Sex: Male
  Weight: 47.2 kg

DRUGS (13)
  1. LACTUL [Concomitant]
     Dates: start: 20200418, end: 20200610
  2. PEMBROLIZUMAB. [Suspect]
     Active Substance: PEMBROLIZUMAB
     Indication: TRANSITIONAL CELL CARCINOMA
     Route: 041
     Dates: start: 20200514, end: 20200514
  3. SIRIN [Concomitant]
     Dates: start: 20200504, end: 20200610
  4. ULTRACET [Concomitant]
     Active Substance: ACETAMINOPHEN\TRAMADOL HYDROCHLORIDE
     Dates: start: 20200504, end: 20200610
  5. LENVATINIB [Suspect]
     Active Substance: LENVATINIB
     Route: 048
  6. PEMBROLIZUMAB. [Suspect]
     Active Substance: PEMBROLIZUMAB
     Route: 041
     Dates: start: 20200604, end: 20200604
  7. KASCOAL [Concomitant]
     Dates: start: 20200504, end: 20200610
  8. TRANSAMIN [Concomitant]
     Active Substance: TRANEXAMIC ACID
     Dates: start: 20200423, end: 20200610
  9. CRAVIT [Concomitant]
     Active Substance: LEVOFLOXACIN
     Dates: start: 20200604, end: 20200610
  10. BISACODYL. [Concomitant]
     Active Substance: BISACODYL
     Dates: start: 20200423, end: 20200610
  11. DEPYRETIN [Concomitant]
     Active Substance: ACETAMINOPHEN
     Dates: start: 20200528
  12. LENVATINIB [Suspect]
     Active Substance: LENVATINIB
     Indication: TRANSITIONAL CELL CARCINOMA
     Route: 048
     Dates: start: 20200514, end: 20200603
  13. NOBAR [Concomitant]
     Dates: start: 20200528, end: 20200610

REACTIONS (1)
  - Pneumocystis jirovecii pneumonia [Fatal]

NARRATIVE: CASE EVENT DATE: 20200611
